FAERS Safety Report 4900852-2 (Version None)
Quarter: 2006Q1

REPORT INFORMATION
  Report Type: 
  Country: None (occurrence: None)
  Receive Date: 20060201
  Receipt Date: 20060117
  Transmission Date: 20060701
  Serious: Yes (Other)
  Sender: FDA-Public Use
  Company Number: GB-2005-0250198

PATIENT
  Age: 53 Year
  Sex: Female

DRUGS (5)
  1. BETAFERON(INTERFERON BETA - 1B) INJECTION, 250UG [Suspect]
     Indication: SECONDARY PROGRESSIVE MULTIPLE SCLEROSIS
     Dosage: 8 MIU, 1 DOSE, SUBCUTANEOUS
     Route: 058
     Dates: start: 20051128, end: 20051128
  2. ANTIDEPRESSANTS [Concomitant]
  3. ZOPICLONE (ZOPICLONE) [Concomitant]
  4. DETRUSITOL (TOLTERODINE-TARTRATE) [Concomitant]
  5. BACLOFEN [Concomitant]

REACTIONS (20)
  - ASTHENIA [None]
  - CONFUSIONAL STATE [None]
  - DRUG HYPERSENSITIVITY [None]
  - DYSARTHRIA [None]
  - ERYTHEMA [None]
  - FALL [None]
  - FATIGUE [None]
  - HEAD DISCOMFORT [None]
  - HEADACHE [None]
  - HYPERHIDROSIS [None]
  - HYPOTONIA [None]
  - INCONTINENCE [None]
  - INJECTION SITE REACTION [None]
  - LOSS OF CONSCIOUSNESS [None]
  - MOBILITY DECREASED [None]
  - OEDEMA PERIPHERAL [None]
  - SENSORY LOSS [None]
  - SERUM SICKNESS [None]
  - SKIN WARM [None]
  - TREMOR [None]
